FAERS Safety Report 17330635 (Version 4)
Quarter: 2020Q1

REPORT INFORMATION
  Report Type: Report from Study
  Country: US (occurrence: US)
  Receive Date: 20200128
  Receipt Date: 20200204
  Transmission Date: 20200409
  Serious: Yes (Hospitalization, Other)
  Sender: FDA-Public Use
  Company Number: US-SHIRE-US202002619

PATIENT
  Age: 60 Year
  Sex: Female

DRUGS (2)
  1. TEDUGLUTIDE [Suspect]
     Active Substance: TEDUGLUTIDE
     Indication: SHORT-BOWEL SYNDROME
     Dosage: 0.48 UNKNOWB UNIT, 1X/DAY:QD
     Route: 065
     Dates: start: 20190701
  2. TEDUGLUTIDE [Suspect]
     Active Substance: TEDUGLUTIDE
     Dosage: 0.38 MILLILITER, 1X/DAY:QD
     Route: 050
     Dates: start: 20190701, end: 20200118

REACTIONS (9)
  - Nausea [Unknown]
  - Abdominal distension [Unknown]
  - Abdominal pain [Unknown]
  - Splenic lesion [Recovering/Resolving]
  - Decreased appetite [Unknown]
  - Colitis [Recovering/Resolving]
  - Vomiting [Unknown]
  - Spinal cord infection [Unknown]
  - Inflammation [Unknown]

NARRATIVE: CASE EVENT DATE: 20200116
